FAERS Safety Report 9859959 (Version 1)
Quarter: 2014Q1

REPORT INFORMATION
  Report Type: Spontaneous
  Country: IT (occurrence: IT)
  Receive Date: 20140131
  Receipt Date: 20140131
  Transmission Date: 20141002
  Serious: Yes (Other)
  Sender: FDA-Public Use
  Company Number: IT-ABBVIE-14P-083-1196791-00

PATIENT
  Age: 42 Year
  Sex: Male

DRUGS (5)
  1. MACLADIN [Suspect]
     Indication: BRONCHITIS
     Route: 048
     Dates: start: 20131106, end: 20131112
  2. TEGRETOL [Interacting]
     Indication: EPILEPSY
     Route: 048
     Dates: start: 20120101, end: 20131112
  3. TEGRETOL [Interacting]
  4. DEPAKIN CHRONO [Concomitant]
     Indication: EPILEPSY
     Route: 048
     Dates: start: 20130101, end: 20131112
  5. DEPAKIN CHRONO [Concomitant]
     Route: 048
     Dates: start: 20120101, end: 20131112

REACTIONS (7)
  - Bradykinesia [Recovering/Resolving]
  - Diplopia [Recovering/Resolving]
  - Drug interaction [Recovering/Resolving]
  - Vertigo [Recovering/Resolving]
  - Vomiting [Recovering/Resolving]
  - Bradyphrenia [Recovering/Resolving]
  - Gait disturbance [Recovering/Resolving]
